FAERS Safety Report 23871409 (Version 1)
Quarter: 2024Q2

REPORT INFORMATION
  Report Type: Spontaneous
  Country: US (occurrence: US)
  Receive Date: 20240519
  Receipt Date: 20240519
  Transmission Date: 20240716
  Serious: No
  Sender: FDA-Public Use
  Company Number: US-SA-SAC20240514000293

PATIENT
  Age: 62 Year
  Sex: Female

DRUGS (9)
  1. DUPIXENT [Suspect]
     Active Substance: DUPILUMAB
     Indication: Dermatitis atopic
     Dosage: 300 MG, QOW
     Route: 058
     Dates: start: 20240313
  2. AZITHROMYCIN [Concomitant]
     Active Substance: AZITHROMYCIN
  3. CLOBETASOL [Concomitant]
     Active Substance: CLOBETASOL
  4. METHOTREXATE [Concomitant]
     Active Substance: METHOTREXATE
  5. PERMETHRIN [Concomitant]
     Active Substance: PERMETHRIN
  6. PREDNISONE [Concomitant]
     Active Substance: PREDNISONE
  7. PROGESTERONE [Concomitant]
     Active Substance: PROGESTERONE
  8. TACROLIMUS [Concomitant]
     Active Substance: TACROLIMUS
  9. METHYLPREDNISOLONE [Concomitant]
     Active Substance: METHYLPREDNISOLONE

REACTIONS (3)
  - Sleep disorder due to a general medical condition [Unknown]
  - Injection site erythema [Unknown]
  - Drug ineffective [Unknown]
